FAERS Safety Report 7668658-1 (Version None)
Quarter: 2011Q3

REPORT INFORMATION
  Report Type: 
  Country: None (occurrence: None)
  Receive Date: 20110808
  Receipt Date: 20110728
  Transmission Date: 20111222
  Serious: Yes (Death, Hospitalization, Other)
  Sender: FDA-Public Use
  Company Number: US-BAYER-201010268NA

PATIENT
  Age: 76 Year
  Sex: Female
  Weight: 72.562 kg

DRUGS (59)
  1. METOPROLOL TARTRATE [Concomitant]
     Dosage: 25 MG, UNK
     Route: 048
  2. NOVOLOG [Concomitant]
     Dosage: SLIDING SCALE
     Route: 058
     Dates: start: 20030103
  3. LIPITOR [Concomitant]
     Dosage: 10 MG, UNK
     Route: 048
     Dates: start: 20030106
  4. PLAVIX [Concomitant]
     Dosage: 75 MG, UNK
     Route: 048
     Dates: start: 20030109
  5. LABETALOL HCL [Concomitant]
     Dosage: UNK
     Route: 042
     Dates: start: 20030109
  6. ZOSYN [Concomitant]
     Dosage: 2.25 G, UNK
     Route: 042
     Dates: start: 20030109
  7. VICODIN [Concomitant]
     Dosage: UNK
     Route: 048
     Dates: start: 20030109
  8. TRASYLOL [Suspect]
     Indication: CORONARY ARTERY BYPASS
     Dosage: 200 ML, CARDIOPULMONARY BYPASS PRIME
     Route: 042
     Dates: start: 20030124, end: 20030124
  9. LEVAQUIN [Concomitant]
     Route: 048
  10. PHOSLO [Concomitant]
     Dosage: UNK
     Route: 048
  11. PROPOFOL [Concomitant]
     Dosage: UNK
     Route: 042
     Dates: start: 20030109
  12. LIDOCAINE [Concomitant]
     Dosage: 100 MG, CPB
     Dates: start: 20030124, end: 20030124
  13. ZEMURON [Concomitant]
     Dosage: UNK
     Route: 042
     Dates: start: 20030117
  14. DIGOXIN [Concomitant]
  15. GLIPIZIDE [Concomitant]
     Route: 048
  16. HEPARIN [Concomitant]
     Dosage: 23000 U, CPB
     Dates: start: 20030124, end: 20030124
  17. FENTANYL [Concomitant]
     Dosage: UNK
     Route: 042
     Dates: start: 20030109
  18. ACETYLSALICYLIC ACID SRT [Concomitant]
     Dosage: 81 MG, UNK
     Route: 048
     Dates: start: 20030113
  19. DILTIAZEM [Concomitant]
     Dosage: 120 MG, UNK
     Route: 042
     Dates: start: 20030103
  20. HEPARIN [Concomitant]
     Dosage: 5000 U, CPB
     Dates: start: 20030124, end: 20030124
  21. VANCOMYCIN [Concomitant]
     Dosage: 1 G, CPB
     Dates: start: 20030124, end: 20030124
  22. VERSED [Concomitant]
     Dosage: UNK
     Route: 042
     Dates: start: 20030124, end: 20030124
  23. PROTAMINE [Concomitant]
     Dosage: UNK
     Route: 042
     Dates: start: 20030117
  24. VECURONIUM BROMIDE [Concomitant]
     Dosage: UNK
     Route: 042
     Dates: start: 20030124, end: 20030124
  25. RED BLOOD CELLS [Concomitant]
     Dosage: UNK
     Dates: start: 20030124
  26. REGLAN [Concomitant]
     Dosage: 10 MG, EVERY 6 HOURS
     Route: 042
  27. NIPRIDE [Concomitant]
     Dosage: 50 MG, DRIP
     Route: 042
  28. PLASMALYTE [GLUCOSE,POTASSIUM CHLORIDE] [Concomitant]
     Dosage: 1800 ML, PRIME
     Dates: start: 20030124, end: 20030124
  29. ENALAPRIL MALEATE [Concomitant]
     Route: 048
  30. CARDIZEM [Concomitant]
     Dosage: 10MG/HR
     Route: 042
     Dates: start: 20030103
  31. ARANESP [Concomitant]
     Dosage: 0.1 MG, UNK
     Route: 058
     Dates: start: 20030103
  32. HEPARIN [Concomitant]
     Dosage: 5000 U, BOLUS
     Route: 042
     Dates: start: 20030105
  33. LISINOPRIL [Concomitant]
     Dosage: 20 MG, UNK
     Route: 048
     Dates: start: 20030110
  34. FERRLECIT [Concomitant]
     Dosage: UNK
     Route: 042
     Dates: start: 20030113
  35. ALBUMIN (HUMAN) [Concomitant]
     Dosage: 250 ML, CPB
     Dates: start: 20030124, end: 20030124
  36. KEFLEX [Concomitant]
  37. ZOCOR [Concomitant]
     Route: 048
  38. ISOSORBIDE DINITRATE [Concomitant]
     Route: 048
  39. CARDIZEM [Concomitant]
     Route: 048
  40. AMIODARONE HCL [Concomitant]
     Dosage: 200 MG, UNK
     Route: 048
     Dates: start: 20030103
  41. HEPARIN [Concomitant]
     Dosage: 850 UNITS/HR
     Route: 042
     Dates: start: 20030105
  42. VANCOMYCIN [Concomitant]
     Dosage: 1 G, UNK
     Route: 042
     Dates: start: 20030109
  43. FENTANYL [Concomitant]
     Dosage: UNK
     Route: 042
     Dates: start: 20030124, end: 20030124
  44. IMDUR [Concomitant]
     Dosage: 20 MG, UNK
     Route: 048
     Dates: start: 20030110
  45. FERRLECIT [Concomitant]
     Dosage: 125 MG, UNK
     Dates: start: 20030103, end: 20030110
  46. NOVOLIN R [Concomitant]
     Dosage: AS DIRECTED
     Route: 058
  47. CEFAZOLIN [Concomitant]
     Dosage: 2 G, UNK
     Route: 042
     Dates: start: 20030123
  48. CATAPRES [Concomitant]
     Route: 048
  49. ZINC [Concomitant]
     Dosage: 220 MG, UNK
     Route: 048
     Dates: start: 20030112
  50. PROCARDIA [Concomitant]
     Route: 048
  51. NITROGLYCERIN [Concomitant]
     Dosage: TITRATED DRIP
     Route: 042
     Dates: start: 20030103
  52. CLONIDINE [Concomitant]
     Dosage: 0.3 MG, UNK
     Route: 048
     Dates: start: 20030104
  53. RENAGEL [Concomitant]
     Dosage: 20 MG, UNK
     Route: 048
     Dates: start: 20030104
  54. LASIX [Concomitant]
     Dosage: 100 MG, UNK
     Route: 042
     Dates: start: 20030106
  55. VERSED [Concomitant]
     Dosage: UNK
     Route: 042
     Dates: start: 20030109
  56. LIDOCAINE [Concomitant]
     Dosage: 100 MG, UNK
     Route: 042
     Dates: start: 20030109
  57. GLUCOTROL [Concomitant]
     Dosage: 7.5 MG, UNK
     Route: 048
     Dates: start: 20030113
  58. ETOMIDATE [Concomitant]
     Dosage: UNK
     Route: 042
     Dates: start: 20030124, end: 20030124
  59. PLATELETS [Concomitant]
     Dosage: 10 U, UNK
     Route: 042

REACTIONS (12)
  - EMOTIONAL DISTRESS [None]
  - STRESS [None]
  - UNEVALUABLE EVENT [None]
  - ANXIETY [None]
  - ANHEDONIA [None]
  - INJURY [None]
  - DEATH [None]
  - RENAL IMPAIRMENT [None]
  - PAIN [None]
  - FEAR [None]
  - RENAL FAILURE [None]
  - RENAL INJURY [None]
